FAERS Safety Report 22099573 (Version 1)
Quarter: 2023Q1

REPORT INFORMATION
  Report Type: Spontaneous
  Country: US (occurrence: US)
  Receive Date: 20230315
  Receipt Date: 20230315
  Transmission Date: 20230417
  Serious: Yes (Hospitalization, Other)
  Sender: FDA-Public Use
  Company Number: US-GLAXOSMITHKLINE-US2023GSK038836

PATIENT

DRUGS (1)
  1. SUMATRIPTAN [Suspect]
     Active Substance: SUMATRIPTAN
     Indication: Migraine
     Dosage: UNK

REACTIONS (7)
  - Unmasking of previously unidentified disease [Unknown]
  - Loss of consciousness [Unknown]
  - Ventricular tachycardia [Unknown]
  - Syncope [Unknown]
  - Cardiac disorder [Unknown]
  - Electrocardiogram ST segment elevation [Unknown]
  - Bundle branch block right [Unknown]
